FAERS Safety Report 4370730-9 (Version None)
Quarter: 2004Q2

REPORT INFORMATION
  Report Type: 
  Country: None (occurrence: None)
  Receive Date: 20040602
  Receipt Date: 20040602
  Transmission Date: 20050107
  Serious: No
  Sender: FDA-Public Use
  Company Number: None

PATIENT
  Sex: Male

DRUGS (2)
  1. CLOZAPINE [Suspect]
     Indication: PSYCHOTIC DISORDER
     Dosage: 700 MG DAILY ORAL
     Route: 048
     Dates: start: 20040428, end: 20040504
  2. SERTRALINE HCL [Suspect]
     Indication: DEPRESSION
     Dosage: 100 MG DAILY ORAL
     Route: 048
     Dates: start: 20040428, end: 20040504

REACTIONS (1)
  - DRUG LEVEL INCREASED [None]
